FAERS Safety Report 6821375-X (Version None)
Quarter: 2010Q3

REPORT INFORMATION
  Report Type: 
  Country: None (occurrence: None)
  Receive Date: 20100707
  Receipt Date: 20080930
  Transmission Date: 20110219
  Serious: No
  Sender: FDA-Public Use
  Company Number: US-PFIZER INC-2008082731

PATIENT
  Sex: Female
  Weight: 50.909 kg

DRUGS (4)
  1. ZOLOFT [Suspect]
     Indication: DEPRESSION
     Route: 048
     Dates: start: 20071201
  2. PIPER METHYSTICUM [Suspect]
  3. HERBAL PREPARATION [Suspect]
  4. TRAZODONE HYDROCHLORIDE [Concomitant]

REACTIONS (1)
  - DRUG SCREEN POSITIVE [None]
